FAERS Safety Report 9444686 (Version 2)
Quarter: 2013Q3

REPORT INFORMATION
  Report Type: Spontaneous
  Country: FR (occurrence: FR)
  Receive Date: 20130807
  Receipt Date: 20130913
  Transmission Date: 20140515
  Serious: Yes (Death, Other)
  Sender: FDA-Public Use
  Company Number: FR-PFIZER INC-2013227587

PATIENT
  Age: 70 Year
  Sex: Female

DRUGS (8)
  1. ADVIL [Suspect]
     Indication: PAIN
     Dosage: 1 TO 3 TABLETS A DAY
     Route: 048
     Dates: end: 20130713
  2. ADVIL [Suspect]
     Indication: BACK PAIN
  3. ADVIL [Suspect]
     Indication: HEADACHE
  4. LODOZ [Concomitant]
     Dosage: 10 MG A DAY
  5. OLMETEC [Concomitant]
     Dosage: 10 MG A DAY
  6. LERCAN [Concomitant]
     Dosage: 10 MG A DAY
  7. ACTONEL [Concomitant]
  8. ROCEPHINE [Concomitant]
     Dosage: 1G A DAY
     Route: 058
     Dates: start: 20130710

REACTIONS (12)
  - Peritoneal haemorrhage [Fatal]
  - Shock haemorrhagic [Fatal]
  - Multi-organ failure [Fatal]
  - Hyperthermia [Unknown]
  - Urinary tract disorder [Unknown]
  - Abdominal pain upper [Unknown]
  - Vomiting [Unknown]
  - Cardio-respiratory arrest [Unknown]
  - Mydriasis [Unknown]
  - Hyperkalaemia [Unknown]
  - Lactic acidosis [Unknown]
  - Anaemia [Unknown]
